FAERS Safety Report 4989337-5 (Version None)
Quarter: 2006Q2

REPORT INFORMATION
  Report Type: 
  Country: None (occurrence: None)
  Receive Date: 20060426
  Receipt Date: 20060420
  Transmission Date: 20061013
  Serious: No
  Sender: FDA-Public Use
  Company Number: YPA20050485

PATIENT
  Age: 48 Year
  Sex: Female
  Weight: 103.6 kg

DRUGS (6)
  1. VESICARE [Suspect]
     Indication: HYPERTONIC BLADDER
     Dosage: 5 MG, UNK; ORAL
     Route: 048
  2. NEXIUM /UNK/ (ESOMEPRAZOLE) [Concomitant]
  3. TRAZODONE HCL [Concomitant]
  4. GLUCOSAMINE CHONDROITIN (GLUCOSAMINE, CHONDROITIN SULFATE) [Concomitant]
  5. MULTIVITAMIN [Concomitant]
  6. CALCIUM WITH VITAMIN D (ERGOCALCIFEROL, CALCIUM SODIUM LACTATE, CALCIU [Concomitant]

REACTIONS (1)
  - NEPHROLITHIASIS [None]
